FAERS Safety Report 9897867 (Version 2)
Quarter: 2014Q2

REPORT INFORMATION
  Report Type: Spontaneous
  Country: US (occurrence: US)
  Receive Date: 20140214
  Receipt Date: 20140428
  Transmission Date: 20141212
  Serious: No
  Sender: FDA-Public Use
  Company Number: US-PFIZER INC-2014039754

PATIENT
  Sex: Male

DRUGS (2)
  1. TOLTERODINE TARTRATE [Suspect]
     Indication: HYPERTONIC BLADDER
     Dosage: 1 MG, 2X/DAY
     Route: 048
     Dates: start: 20140201, end: 201402
  2. TOLTERODINE TARTRATE [Suspect]
     Dosage: 2 MG, 2X/DAY
     Dates: start: 201402

REACTIONS (2)
  - Drug ineffective [Unknown]
  - Incorrect dose administered [Unknown]
